FAERS Safety Report 11285919 (Version 12)
Quarter: 2019Q2

REPORT INFORMATION
  Report Type: Spontaneous
  Country: CO (occurrence: CO)
  Receive Date: 20150721
  Receipt Date: 20190603
  Transmission Date: 20190711
  Serious: Yes (Hospitalization, Other)
  Sender: FDA-Public Use
  Company Number: CO-AMGEN-COLSP2015072257

PATIENT
  Age: 79 Year
  Sex: Male

DRUGS (4)
  1. ENBREL [Suspect]
     Active Substance: ETANERCEPT
     Dosage: 50 MG, MONTHLY
     Route: 058
     Dates: start: 20181124
  2. ENBREL [Suspect]
     Active Substance: ETANERCEPT
     Indication: PSORIASIS
     Dosage: 50 MG, TWICE A WEEK
     Route: 058
     Dates: start: 2009, end: 201705
  3. ENBREL [Suspect]
     Active Substance: ETANERCEPT
     Dosage: 50 MG, 2X/WEEK
     Route: 058
     Dates: start: 2009
  4. ENBREL [Suspect]
     Active Substance: ETANERCEPT
     Dosage: 50 MG, 2X/WEEK
     Route: 058
     Dates: start: 200811, end: 20181124

REACTIONS (14)
  - Vomiting [Recovered/Resolved]
  - Pallor [Not Recovered/Not Resolved]
  - Pain in extremity [Not Recovered/Not Resolved]
  - Product use issue [Unknown]
  - Arterial occlusive disease [Not Recovered/Not Resolved]
  - Pruritus [Not Recovered/Not Resolved]
  - Renal failure [Recovered/Resolved]
  - Peripheral coldness [Unknown]
  - Asphyxia [Recovered/Resolved]
  - Cardiac failure [Recovered/Resolved]
  - Wound complication [Not Recovered/Not Resolved]
  - Gait disturbance [Not Recovered/Not Resolved]
  - Fatigue [Not Recovered/Not Resolved]
  - Vertigo [Not Recovered/Not Resolved]

NARRATIVE: CASE EVENT DATE: 2013
